FAERS Safety Report 25555137 (Version 1)
Quarter: 2025Q3

REPORT INFORMATION
  Report Type: Spontaneous
  Country: EU (occurrence: EU)
  Receive Date: 20250715
  Receipt Date: 20250715
  Transmission Date: 20251021
  Serious: Yes (Life-Threatening)
  Sender: TEVA
  Company Number: None

PATIENT
  Age: 29 Year
  Sex: Male
  Weight: 52 kg

DRUGS (1)
  1. QUETIAPINE [Suspect]
     Active Substance: QUETIAPINE
     Indication: Product used for unknown indication
     Route: 048
     Dates: start: 20211021, end: 20211021

REACTIONS (3)
  - Somnolence [Not Recovered/Not Resolved]
  - Suicide attempt [Not Recovered/Not Resolved]
  - Toxicity to various agents [Not Recovered/Not Resolved]
